FAERS Safety Report 4362243-5 (Version None)
Quarter: 2004Q2

REPORT INFORMATION
  Report Type: 
  Country: None (occurrence: None)
  Receive Date: 20040518
  Receipt Date: 20040503
  Transmission Date: 20050107
  Serious: Yes (Other)
  Sender: FDA-Public Use
  Company Number: 04-160-0151

PATIENT
  Age: 45 Year
  Sex: Female
  Weight: 63.9572 kg

DRUGS (4)
  1. LEUCOVORIN CAL., 100 MG, BEN VENUE LABS [Suspect]
     Indication: LYMPHOMA
     Dosage: 12MG IT X 1
     Dates: start: 20040503
  2. DEPOCYTE [Concomitant]
  3. METHOTREXATE [Concomitant]
  4. SOLU-CORTEF [Concomitant]

REACTIONS (1)
  - MEDICATION ERROR [None]
